FAERS Safety Report 5193538-3 (Version None)
Quarter: 2006Q4

REPORT INFORMATION
  Report Type: 
  Country: None (occurrence: None)
  Receive Date: 20061228
  Receipt Date: 20060714
  Transmission Date: 20070319
  Serious: No
  Sender: FDA-Public Use
  Company Number: US-GLAXOSMITHKLINE-A0612314A

PATIENT
  Age: 65 Year
  Sex: Female

DRUGS (1)
  1. FLONASE [Suspect]
     Dosage: 200MCG PER DAY
     Route: 045
     Dates: start: 20060713

REACTIONS (6)
  - ABDOMINAL PAIN UPPER [None]
  - COUGH [None]
  - DYSPNOEA [None]
  - HEADACHE [None]
  - NAUSEA [None]
  - RHINORRHOEA [None]
